FAERS Safety Report 17763178 (Version 1)
Quarter: 2020Q2

REPORT INFORMATION
  Report Type: Spontaneous
  Country: DE (occurrence: DE)
  Receive Date: 20200508
  Receipt Date: 20200508
  Transmission Date: 20200714
  Serious: Yes (Congenital Anomaly, Other)
  Sender: FDA-Public Use
  Company Number: DE-INSUD PHARMA-2004DE00075

PATIENT

DRUGS (1)
  1. PROGESTERONE. [Suspect]
     Active Substance: PROGESTERONE
     Indication: PREGNANCY
     Dosage: 200 MG DAILY
     Route: 064
     Dates: start: 20170201, end: 20170331

REACTIONS (1)
  - Hypospadias [Recovered/Resolved]

NARRATIVE: CASE EVENT DATE: 20170911
